FAERS Safety Report 5399069-X (Version None)
Quarter: 2007Q3

REPORT INFORMATION
  Report Type: 
  Country: None (occurrence: None)
  Receive Date: 20070725
  Receipt Date: 20070725
  Transmission Date: 20080115
  Serious: Yes (Death)
  Sender: FDA-Public Use
  Company Number: None

PATIENT
  Age: 69 Year
  Sex: Male
  Weight: 91.6266 kg

DRUGS (6)
  1. SUTENT [Suspect]
     Dosage: 37.5 MG QD ORAL
     Route: 048
     Dates: start: 20070621, end: 20070702
  2. ATENOLOL [Concomitant]
  3. ZOFRAN [Concomitant]
  4. ZOMETA [Concomitant]
  5. PROTONIX [Concomitant]
  6. MULTI-VITAMIN [Concomitant]

REACTIONS (4)
  - CARDIAC ARREST [None]
  - DISEASE PROGRESSION [None]
  - HEPATIC FAILURE [None]
  - HYPERKALAEMIA [None]
